FAERS Safety Report 5051864-2 (Version None)
Quarter: 2006Q3

REPORT INFORMATION
  Report Type: 
  Country: None (occurrence: None)
  Receive Date: 20060712
  Receipt Date: 20060712
  Transmission Date: 20061208
  Serious: Yes (Other)
  Sender: FDA-Public Use
  Company Number: None

PATIENT
  Age: 69 Year
  Sex: Male
  Weight: 111.1313 kg

DRUGS (1)
  1. LOVASTATIN [Suspect]
     Indication: HYPERLIPIDAEMIA
     Dosage: 80 MG, QDAY, PO GRADUALLY INCREASING DOSE
     Route: 048
     Dates: start: 20020101, end: 20060203

REACTIONS (2)
  - PAIN [None]
  - PARAESTHESIA [None]
